FAERS Safety Report 9500220 (Version 1)
Quarter: 2013Q3

REPORT INFORMATION
  Report Type: Spontaneous
  Country: US (occurrence: None)
  Receive Date: 20130903
  Receipt Date: 20130903
  Transmission Date: 20140515
  Serious: Yes (Hospitalization, Other)
  Sender: FDA-Public Use
  Company Number: 2013SGN00367

PATIENT
  Age: 28 Year
  Sex: Female
  Weight: 59.5 kg

DRUGS (3)
  1. BRENTUXIMAB VEDOTIN [Suspect]
     Indication: HODGKIN^S DISEASE
     Route: 042
     Dates: start: 20130503, end: 20130503
  2. GEMCITABINE [Suspect]
     Indication: HODGKIN^S DISEASE
     Route: 042
     Dates: start: 20130503, end: 20130503
  3. SULFAMETHOXAZOLE W/TRIMETHOPRIM (SULFAMETHAXZOLE, TRIMETHOPRIM) [Concomitant]

REACTIONS (10)
  - Superior vena cava syndrome [None]
  - Pleural effusion [None]
  - Pericardial effusion [None]
  - Oedema peripheral [None]
  - Rash maculo-papular [None]
  - Rash pruritic [None]
  - Rash generalised [None]
  - Clostridium test positive [None]
  - Pyrexia [None]
  - Rash erythematous [None]
